FAERS Safety Report 5858694-X (Version None)
Quarter: 2008Q3

REPORT INFORMATION
  Report Type: 
  Country: None (occurrence: None)
  Receive Date: 20080826
  Receipt Date: 20080818
  Transmission Date: 20090109
  Serious: No
  Sender: FDA-Public Use
  Company Number: US-BOEHRINGER INGELHEIM GMBH, GERMANY-2008-BP-13157PF

PATIENT
  Sex: Female

DRUGS (3)
  1. SPIRIVA [Suspect]
  2. KLONOPIN [Concomitant]
  3. PRIMIDONE [Concomitant]

REACTIONS (2)
  - ANXIETY [None]
  - PANIC ATTACK [None]
